FAERS Safety Report 9310202 (Version 2)
Quarter: 2013Q2

REPORT INFORMATION
  Report Type: Spontaneous
  Country: AU (occurrence: AU)
  Receive Date: 20130527
  Receipt Date: 20130605
  Transmission Date: 20140414
  Serious: Yes (Other)
  Sender: FDA-Public Use
  Company Number: AU-GE HEALTHCARE MEDICAL DIAGNOSTICS-VISP-PR-1305S-0634

PATIENT
  Age: 55 Year
  Sex: Male
  Weight: 85 kg

DRUGS (4)
  1. VISIPAQUE [Suspect]
     Indication: MUSCULAR WEAKNESS
     Route: 042
     Dates: start: 20111108, end: 20111108
  2. VISIPAQUE [Suspect]
     Indication: NERVOUS SYSTEM DISORDER
  3. VISIPAQUE [Suspect]
     Indication: VERTEBROBASILAR INSUFFICIENCY
  4. VISIPAQUE [Suspect]
     Indication: DIAGNOSTIC PROCEDURE

REACTIONS (2)
  - Staphylococcal skin infection [Not Recovered/Not Resolved]
  - Dermatitis [Not Recovered/Not Resolved]
